FAERS Safety Report 19728272 (Version 5)
Quarter: 2021Q4

REPORT INFORMATION
  Report Type: Report from Study
  Country: JP (occurrence: JP)
  Receive Date: 20210820
  Receipt Date: 20211201
  Transmission Date: 20220303
  Serious: Yes (Hospitalization)
  Sender: FDA-Public Use
  Company Number: JP-SERVIER-S21008845

PATIENT

DRUGS (25)
  1. AZACITIDINE [Suspect]
     Active Substance: AZACITIDINE
     Indication: Acute myeloid leukaemia
     Dosage: 142 MG, DAILY
     Route: 058
     Dates: start: 20200420, end: 20200428
  2. AZACITIDINE [Suspect]
     Active Substance: AZACITIDINE
     Dosage: 137 MG, DAILY
     Route: 058
     Dates: start: 20200601, end: 20200609
  3. AZACITIDINE [Suspect]
     Active Substance: AZACITIDINE
     Dosage: 134 MG, DAILY
     Route: 058
     Dates: start: 20200629, end: 20200707
  4. AZACITIDINE [Suspect]
     Active Substance: AZACITIDINE
     Dosage: 136 MG, DAILY
     Route: 058
     Dates: start: 20200803, end: 20200811
  5. AZACITIDINE [Suspect]
     Active Substance: AZACITIDINE
     Dosage: 133 MG, DAILY
     Route: 058
     Dates: start: 20200908, end: 20201105
  6. AZACITIDINE [Suspect]
     Active Substance: AZACITIDINE
     Dosage: 134 MG, DAILY
     Route: 058
     Dates: start: 20201124, end: 20201130
  7. AZACITIDINE [Suspect]
     Active Substance: AZACITIDINE
     Dosage: 136 MG, DAILY
     Route: 058
     Dates: start: 20201221, end: 20201227
  8. AZACITIDINE [Suspect]
     Active Substance: AZACITIDINE
     Dosage: 138 MG, DAILY
     Route: 058
     Dates: start: 20210118, end: 20210124
  9. AZACITIDINE [Suspect]
     Active Substance: AZACITIDINE
     Dosage: 137 MG, DAILY
     Route: 058
     Dates: start: 20210216, end: 20210222
  10. AZACITIDINE [Suspect]
     Active Substance: AZACITIDINE
     Dosage: 135 MG, DAILY
     Route: 058
     Dates: start: 20210316, end: 20210419
  11. AZACITIDINE [Suspect]
     Active Substance: AZACITIDINE
     Dosage: 133 MG, DAILY
     Route: 058
     Dates: start: 20210511, end: 20210517
  12. AZACITIDINE [Suspect]
     Active Substance: AZACITIDINE
     Dosage: 134 MG, DAILY
     Route: 058
     Dates: start: 20210608, end: 20210614
  13. AZACITIDINE [Suspect]
     Active Substance: AZACITIDINE
     Dosage: 65 MG, DAILY
     Route: 058
     Dates: start: 20210831, end: 20211004
  14. AZACITIDINE [Suspect]
     Active Substance: AZACITIDINE
     Dosage: 64 MG, DAILY
     Route: 058
     Dates: start: 20211026
  15. TN UNSPECIFIED [Concomitant]
     Indication: Cataract
     Dosage: 0.5 ML, BID
     Route: 047
  16. TN UNSPECIFIED [Concomitant]
     Indication: Dyslipidaemia
     Dosage: 2.5 MG, QD
     Route: 048
  17. TN UNSPECIFIED [Concomitant]
     Indication: Gastrooesophageal reflux disease
     Dosage: 20 MG, QD
     Route: 048
  18. TN UNSPECIFIED [Concomitant]
     Indication: Hyperuricaemia
     Dosage: 40 MG, QD
     Route: 048
     Dates: start: 20210222
  19. TN UNSPECIFIED [Concomitant]
     Dosage: 10 MG, QD
     Route: 048
     Dates: start: 20210822
  20. TN UNSPECIFIED [Concomitant]
     Indication: Hypertension
     Dosage: 40 MG, BID
     Route: 048
     Dates: start: 20210223, end: 20210829
  21. TN UNSPECIFIED [Concomitant]
     Indication: Renal disorder
     Dosage: 300, OTHER, MONTLY
     Route: 058
     Dates: start: 20210517
  22. TN UNSPECIFIED [Concomitant]
     Indication: Renal disorder
     Dosage: 500 MG, TID
     Route: 048
     Dates: start: 20210610, end: 20210817
  23. TN UNSPECIFIED [Concomitant]
     Dosage: 500 MG, QD
     Route: 048
     Dates: start: 20210818
  24. COVID-19 VACCINE [Concomitant]
     Indication: COVID-19 prophylaxis
     Dosage: 0.3 ML, ONE DOSE
     Route: 030
     Dates: start: 20210718, end: 20210718
  25. TN UNSPECIFIED [Concomitant]
     Indication: Hypertension
     Dosage: 10 MG, QD
     Route: 048
     Dates: start: 20210821, end: 20210825

REACTIONS (2)
  - Renal disorder [Recovered/Resolved]
  - Renal disorder [Recovered/Resolved]

NARRATIVE: CASE EVENT DATE: 20210805
